FAERS Safety Report 8539558 (Version 2)
Quarter: 2012Q4

REPORT INFORMATION
  Report Type: 
  Country: SE (occurrence: SE)
  Receive Date: 20120502
  Receipt Date: 20121206
  Transmission Date: 20130627
  Serious: Yes (Other)
  Sender: FDA-Public Use
  Company Number: SE-AMGEN-SWESP2012017240

PATIENT
  Age: 63 Year
  Sex: Female

DRUGS (2)
  1. ENBREL [Suspect]
     Indication: RHEUMATOID ARTHRITIS
     Dosage: 50 mg, qwk
     Dates: start: 201103
  2. ENBREL [Suspect]
     Dosage: 50 mg, weekly

REACTIONS (10)
  - Gastrointestinal haemorrhage [Unknown]
  - Haemorrhage subcutaneous [Unknown]
  - Increased tendency to bruise [Unknown]
  - Mucosal dryness [Unknown]
  - Wound [Unknown]
  - Insomnia [Not Recovered/Not Resolved]
  - Rash [Recovered/Resolved]
  - Infection [Unknown]
  - Pain in extremity [Not Recovered/Not Resolved]
  - Arthritis [Not Recovered/Not Resolved]
